FAERS Safety Report 6954869-7 (Version None)
Quarter: 2010Q3

REPORT INFORMATION
  Report Type: 
  Country: None (occurrence: None)
  Receive Date: 20100830
  Receipt Date: 20100730
  Transmission Date: 20110219
  Serious: No
  Sender: FDA-Public Use
  Company Number: US-BAYER-201019115BCC

PATIENT
  Age: 35 Year
  Sex: Female
  Weight: 58 kg

DRUGS (5)
  1. ALEVE (CAPLET) [Suspect]
     Indication: MIGRAINE
     Dosage: UNIT DOSE: 220 MG
     Route: 065
     Dates: start: 20100728, end: 20100728
  2. ALEVE (CAPLET) [Suspect]
     Dosage: UNIT DOSE: 220 MG
     Route: 065
     Dates: start: 20100729
  3. YAZ [Concomitant]
  4. CITALOPRAM [Concomitant]
  5. ADVIL LIQUI-GELS [Concomitant]
     Dosage: UNIT DOSE: 1 DF
     Dates: start: 20100728

REACTIONS (1)
  - NO ADVERSE EVENT [None]
